FAERS Safety Report 7089376-7 (Version None)
Quarter: 2010Q4

REPORT INFORMATION
  Report Type: 
  Country: None (occurrence: None)
  Receive Date: 20101029
  Receipt Date: 20101021
  Transmission Date: 20110411
  Serious: Yes (Other)
  Sender: FDA-Public Use
  Company Number: 2010MA002710

PATIENT
  Age: 37 Year
  Sex: Female

DRUGS (3)
  1. CITALOPRAM HYDROBROMIDE [Suspect]
     Indication: DEPRESSION
     Dosage: 10 MG; PO
     Route: 048
     Dates: start: 20100618
  2. LEVOTHYROXINE SODIUM [Suspect]
     Indication: HYPOTHYROIDISM
     Dosage: 125 UG; ; PO
     Route: 048
  3. VITAMIN B COMPLEX CAP [Concomitant]

REACTIONS (3)
  - ANXIETY [None]
  - DRUG INTERACTION [None]
  - THYROXINE FREE INCREASED [None]
